FAERS Safety Report 24875955 (Version 1)
Quarter: 2025Q1

REPORT INFORMATION
  Report Type: Spontaneous
  Country: PT (occurrence: PT)
  Receive Date: 20250123
  Receipt Date: 20250123
  Transmission Date: 20250408
  Serious: No
  Sender: ALKEM
  Company Number: PT-ALKEM LABORATORIES LIMITED-PT-ALKEM-2024-11031

PATIENT
  Age: 70 Year
  Sex: Male

DRUGS (12)
  1. MORPHINE SULFATE [Suspect]
     Active Substance: MORPHINE SULFATE
     Indication: Depressive symptom
     Route: 058
  2. MORPHINE SULFATE [Suspect]
     Active Substance: MORPHINE SULFATE
     Route: 058
  3. MORPHINE SULFATE [Suspect]
     Active Substance: MORPHINE SULFATE
     Route: 058
  4. KETAMINE [Suspect]
     Active Substance: KETAMINE
     Indication: Depressive symptom
     Dosage: 100 MILLIGRAM, QD
     Route: 058
  5. KETAMINE [Suspect]
     Active Substance: KETAMINE
     Dosage: 150 MILLIGRAM, QD
     Route: 058
  6. KETAMINE [Suspect]
     Active Substance: KETAMINE
     Dosage: 200 MILLIGRAM, QD
     Route: 058
  7. KETAMINE [Suspect]
     Active Substance: KETAMINE
     Dosage: 250 MILLIGRAM, QD
     Route: 058
  8. KETAMINE [Suspect]
     Active Substance: KETAMINE
     Route: 058
  9. METOCLOPRAMIDE [Suspect]
     Active Substance: METOCLOPRAMIDE
     Indication: Malignant gastrointestinal obstruction
     Route: 058
  10. METOCLOPRAMIDE [Suspect]
     Active Substance: METOCLOPRAMIDE
     Route: 058
  11. BUTYLSCOPOLAMINE [Suspect]
     Active Substance: BUTYLSCOPOLAMINE
     Indication: Malignant gastrointestinal obstruction
     Route: 058
  12. BUPRENORPHINE [Concomitant]
     Active Substance: BUPRENORPHINE
     Indication: Pain
     Route: 065

REACTIONS (4)
  - Decreased appetite [Unknown]
  - Abdominal pain [Unknown]
  - Nausea [Unknown]
  - Vomiting [Unknown]
